FAERS Safety Report 4270499-2 (Version None)
Quarter: 2004Q1

REPORT INFORMATION
  Report Type: 
  Country: None (occurrence: None)
  Receive Date: 20040113
  Receipt Date: 20040113
  Transmission Date: 20041129
  Serious: Yes (Death, Life-Threatening, Hospitalization, Disabling)
  Sender: FDA-Public Use
  Company Number: None

PATIENT
  Age: 67 Year
  Sex: Male
  Weight: 92.9874 kg

DRUGS (13)
  1. PLAVIX [Suspect]
     Indication: CEREBROVASCULAR ACCIDENT PROPHYLAXIS
     Dosage: 75 MG QD ORAL
     Route: 048
     Dates: start: 20030828, end: 20031028
  2. ASPIRIN [Suspect]
     Indication: CEREBROVASCULAR ACCIDENT PROPHYLAXIS
     Dosage: 325 MG QD ORAL
     Route: 048
     Dates: start: 20030828, end: 20031028
  3. ATENOLOL [Concomitant]
  4. FELODIPINE [Concomitant]
  5. FINASTERIDE [Concomitant]
  6. GABAPENTIN [Concomitant]
  7. ISOSORBIDE DINITRATE [Concomitant]
  8. LATANOPROST [Concomitant]
  9. LISINOPRIL [Concomitant]
  10. PAROXETINE [Concomitant]
  11. RABEPRAZOLE SODIUM [Concomitant]
  12. SIMVASTATIN [Concomitant]
  13. TERAZOSIN HCL [Concomitant]

REACTIONS (11)
  - BLOOD PRESSURE INCREASED [None]
  - BRAIN OEDEMA [None]
  - BRAIN SCAN ABNORMAL [None]
  - CEREBRAL HAEMORRHAGE [None]
  - DEPRESSED LEVEL OF CONSCIOUSNESS [None]
  - FALL [None]
  - HEAD INJURY [None]
  - HEADACHE [None]
  - INTERNATIONAL NORMALISED RATIO DECREASED [None]
  - INTRAVENTRICULAR HAEMORRHAGE [None]
  - PLATELET COUNT DECREASED [None]
